FAERS Safety Report 14512342 (Version 3)
Quarter: 2018Q1

REPORT INFORMATION
  Report Type: Spontaneous
  Country: US (occurrence: US)
  Receive Date: 20180209
  Receipt Date: 20180328
  Transmission Date: 20180509
  Serious: No
  Sender: FDA-Public Use
  Company Number: US-PFIZER INC-2015134125

PATIENT
  Age: 11 Year
  Sex: Female
  Weight: 15 kg

DRUGS (8)
  1. VYVANSE [Concomitant]
     Active Substance: LISDEXAMFETAMINE DIMESYLATE
     Indication: ATTENTION DEFICIT/HYPERACTIVITY DISORDER
     Dosage: 30 MG, UNK (ONCE)
     Route: 048
     Dates: start: 201503
  2. GENOTROPIN [Suspect]
     Active Substance: SOMATROPIN
     Dosage: 2 MG, DAILY
     Route: 030
     Dates: start: 201504
  3. GENOTROPIN [Suspect]
     Active Substance: SOMATROPIN
     Indication: GROWTH HORMONE DEFICIENCY
     Dosage: 1.4 MG, ONCE DAILY
     Route: 058
     Dates: start: 20150407
  4. VYVANSE [Concomitant]
     Active Substance: LISDEXAMFETAMINE DIMESYLATE
     Dosage: 30 MG, UNK (ONCE)
     Route: 048
     Dates: start: 2017
  5. GENOTROPIN [Suspect]
     Active Substance: SOMATROPIN
     Indication: GROWTH HORMONE DEFICIENCY
     Dosage: 1.5 MG, ONCE A DAY
  6. VYVANSE [Concomitant]
     Active Substance: LISDEXAMFETAMINE DIMESYLATE
     Indication: DISTURBANCE IN ATTENTION
     Dosage: 10 MG, 1X/DAY
  7. GENOTROPIN [Suspect]
     Active Substance: SOMATROPIN
     Dosage: 1.9 ONCE
     Dates: start: 201504
  8. SUPPRELIN [Concomitant]
     Active Substance: HISTRELIN ACETATE
     Indication: DELAYED PUBERTY
     Dosage: UNK
     Dates: start: 2016

REACTIONS (4)
  - Incorrect route of drug administration [Unknown]
  - Drug dose omission [Unknown]
  - Injection site pain [Unknown]
  - Device issue [Unknown]

NARRATIVE: CASE EVENT DATE: 201504
